FAERS Safety Report 7724998 (Version 4)
Quarter: 2013Q2

REPORT INFORMATION
  Report Type: Spontaneous
  Country: US (occurrence: US)
  Receive Date: 20101221
  Receipt Date: 20130509
  Transmission Date: 20140414
  Serious: Yes (Hospitalization, Other)
  Sender: FDA-Public Use
  Company Number: US-US-EMD SERONO, INC.-7032238

PATIENT
  Age: 31 Year
  Sex: Male
  Weight: 86 kg

DRUGS (6)
  1. REBIF [Suspect]
     Indication: MULTIPLE SCLEROSIS
     Route: 058
     Dates: start: 20100801, end: 201304
  2. TOPAMAX [Concomitant]
     Indication: CONVULSION
     Dates: start: 2008
  3. TOPAMAX [Concomitant]
     Indication: PAIN
  4. TOPAMAX [Concomitant]
     Indication: MULTIPLE SCLEROSIS
  5. LYRICA [Concomitant]
     Indication: PAIN
  6. ENABLEX                            /01760401/ [Concomitant]
     Indication: BLADDER DISORDER

REACTIONS (9)
  - Grand mal convulsion [Recovering/Resolving]
  - Sepsis [Recovering/Resolving]
  - Arthritis infective [Recovering/Resolving]
  - Psychogenic seizure [Recovering/Resolving]
  - Pulmonary embolism [Recovering/Resolving]
  - Bipolar disorder [Recovering/Resolving]
  - Post-traumatic stress disorder [Recovering/Resolving]
  - Tremor [Unknown]
  - Multiple sclerosis [Not Recovered/Not Resolved]
